FAERS Safety Report 26114199 (Version 1)
Quarter: 2025Q4

REPORT INFORMATION
  Report Type: Report from Study
  Country: US (occurrence: US)
  Receive Date: 20251202
  Receipt Date: 20251202
  Transmission Date: 20260118
  Serious: No
  Sender: MALLINCKRODT
  Company Number: US-MALLINCKRODT-MNK202507526

PATIENT
  Age: 37 Year
  Sex: Female

DRUGS (3)
  1. CORTICOTROPIN [Suspect]
     Active Substance: CORTICOTROPIN
     Indication: Scleritis
     Dosage: 80 UNITS
     Route: 058
     Dates: start: 20251123
  2. PREDNISONE [Concomitant]
     Active Substance: PREDNISONE
     Dosage: UNKNOWN
  3. REMICADE [Concomitant]
     Active Substance: INFLIXIMAB
     Dosage: UNKNOWN

REACTIONS (2)
  - Migraine [Unknown]
  - Muscular weakness [Unknown]

NARRATIVE: CASE EVENT DATE: 20251101
